FAERS Safety Report 6419768-8 (Version None)
Quarter: 2009Q4

REPORT INFORMATION
  Report Type: 
  Country: None (occurrence: None)
  Receive Date: 20091013
  Receipt Date: 20081014
  Transmission Date: 20100525
  Serious: Yes (Other)
  Sender: FDA-Public Use
  Company Number: 1000001288

PATIENT
  Age: 45 Year
  Sex: Female

DRUGS (6)
  1. LEXAPRO [Suspect]
     Indication: ANXIETY
     Dosage: 10 MG (10 MG, 1 IN 1 D), ORAL
     Route: 048
     Dates: start: 20021001, end: 20070501
  2. LEXAPRO [Suspect]
     Indication: DEPRESSION
     Dosage: 10 MG (10 MG, 1 IN 1 D), ORAL
     Route: 048
     Dates: start: 20021001, end: 20070501
  3. CHANTIX [Suspect]
     Indication: SMOKING CESSATION THERAPY
     Dosage: DAILY
     Dates: start: 20070102, end: 20070202
  4. LEVOXYL [Concomitant]
  5. LISINOPRIL [Concomitant]
  6. SINGULAIR [Concomitant]

REACTIONS (6)
  - CRYING [None]
  - DEPRESSION [None]
  - DIZZINESS [None]
  - FEELINGS OF WORTHLESSNESS [None]
  - IRRITABILITY [None]
  - SUICIDAL IDEATION [None]
